FAERS Safety Report 9384473 (Version 2)
Quarter: 2013Q3

REPORT INFORMATION
  Report Type: Report from Study
  Country: JP (occurrence: JP)
  Receive Date: 20130705
  Receipt Date: 20130905
  Transmission Date: 20140515
  Serious: Yes (Hospitalization)
  Sender: FDA-Public Use
  Company Number: JP-AMGEN-JPNCT2013047220

PATIENT
  Age: 92 Year
  Sex: Female
  Weight: 38 kg

DRUGS (25)
  1. DARBEPOETIN ALFA [Suspect]
     Indication: NEPHROGENIC ANAEMIA
     Dosage: 120 MUG, Q3WK
     Route: 058
     Dates: start: 20110407, end: 20110519
  2. DARBEPOETIN ALFA [Suspect]
     Dosage: 120 MUG, QD
     Route: 058
     Dates: start: 20110616, end: 20110616
  3. DARBEPOETIN ALFA [Suspect]
     Dosage: 120 MUG, QD
     Route: 058
     Dates: start: 20120728, end: 20120728
  4. DARBEPOETIN ALFA [Suspect]
     Dosage: 120 MUG, Q3WK
     Route: 058
     Dates: start: 20110908, end: 20111020
  5. DARBEPOETIN ALFA [Suspect]
     Dosage: 30 MUG, Q3WK
     Route: 058
     Dates: start: 20111110, end: 20111201
  6. DARBEPOETIN ALFA [Suspect]
     Dosage: 20 MUG, Q3WK
     Route: 058
     Dates: start: 20111221, end: 20120405
  7. DARBEPOETIN ALFA [Suspect]
     Dosage: 30 MUG, QD
     Route: 058
     Dates: start: 20120417, end: 20120417
  8. DARBEPOETIN ALFA [Suspect]
     Dosage: 60 MUG, Q2WK
     Route: 058
     Dates: start: 20120913, end: 20121108
  9. DARBEPOETIN ALFA [Suspect]
     Dosage: 60 MUG, Q3WK
     Route: 058
     Dates: start: 20121129, end: 20121220
  10. DARBEPOETIN ALFA [Suspect]
     Dosage: 60 MUG, Q2WK
     Route: 058
     Dates: start: 20130124, end: 20130221
  11. DARBEPOETIN ALFA [Suspect]
     Dosage: 60 MUG, Q2WK
     Route: 058
     Dates: start: 20130321, end: 20130404
  12. FERRUM [Concomitant]
     Dosage: UNK
     Route: 048
  13. ZYLORIC [Concomitant]
     Dosage: UNK
     Route: 048
  14. ARGAMATE [Concomitant]
     Dosage: UNK
     Route: 048
  15. LASIX [Concomitant]
     Indication: NEPHROSCLEROSIS
     Dosage: UNK
     Route: 048
  16. FEBURIC [Concomitant]
     Dosage: UNK
     Route: 048
  17. KREMEZIN [Concomitant]
     Dosage: UNK
     Route: 048
  18. MIRCERA [Concomitant]
     Indication: NEPHROSCLEROSIS
     Dosage: UNK
     Route: 065
  19. NEXIUM [Concomitant]
     Indication: NEPHROSCLEROSIS
     Dosage: UNK
     Route: 048
  20. NORVASC [Concomitant]
     Indication: NEPHROSCLEROSIS
     Dosage: UNK
     Route: 048
  21. VASOLAN [Concomitant]
     Indication: NEPHROSCLEROSIS
     Dosage: UNK
     Route: 048
  22. MUCOSTA [Concomitant]
     Indication: NEPHROSCLEROSIS
     Dosage: UNK
     Route: 048
  23. FRANDOL S [Concomitant]
     Indication: NEPHROSCLEROSIS
     Dosage: UNK
     Route: 062
  24. SORBITOL [Concomitant]
     Indication: NEPHROSCLEROSIS
     Dosage: UNK
     Route: 048
  25. RIVOTRIL [Concomitant]
     Indication: NEPHROSCLEROSIS
     Dosage: UNK
     Route: 048

REACTIONS (3)
  - Cardiac failure congestive [Recovering/Resolving]
  - Atrial fibrillation [Recovering/Resolving]
  - Rectal ulcer [Recovered/Resolved]
